FAERS Safety Report 25732485 (Version 2)
Quarter: 2025Q3

REPORT INFORMATION
  Report Type: Report from Study
  Country: CA (occurrence: CA)
  Receive Date: 20250827
  Receipt Date: 20250912
  Transmission Date: 20251020
  Serious: Yes (Death, Other)
  Sender: GILEAD
  Company Number: CA-GILEAD-2025-0725547

PATIENT
  Sex: Male

DRUGS (1)
  1. SOFOSBUVIR\VELPATASVIR [Suspect]
     Active Substance: SOFOSBUVIR\VELPATASVIR
     Indication: Chronic hepatitis C
     Route: 065

REACTIONS (6)
  - Death [Fatal]
  - Hepatic failure [Fatal]
  - Pelvic fracture [Fatal]
  - Fall [Fatal]
  - Chronic hepatitis C [Unknown]
  - Product use issue [Recovered/Resolved]
